FAERS Safety Report 6052669-6 (Version None)
Quarter: 2009Q1

REPORT INFORMATION
  Report Type: 
  Country: None (occurrence: None)
  Receive Date: 20090127
  Receipt Date: 20090115
  Transmission Date: 20090719
  Serious: Yes (Hospitalization)
  Sender: FDA-Public Use
  Company Number: FR-PFIZER INC-2009158346

PATIENT

DRUGS (7)
  1. ALDACTONE [Suspect]
     Indication: HYPERTENSION
     Dosage: UNK
     Route: 048
  2. ISOPTIN [Suspect]
     Indication: HYPERTENSION
     Dosage: UNK
     Route: 048
     Dates: start: 20080801
  3. PLAVIX [Suspect]
     Indication: CORONARY ARTERY INSUFFICIENCY
     Dosage: UNK
     Route: 048
     Dates: start: 20030101
  4. CRESTOR [Suspect]
     Indication: HYPERCHOLESTEROLAEMIA
     Dosage: UNK
     Route: 048
  5. EUPRESSYL [Suspect]
     Indication: HYPERTENSION
     Dosage: UNK
     Route: 048
  6. XATRAL [Suspect]
     Indication: PROSTATIC ADENOMA
     Dosage: UNK
     Route: 048
  7. RAMIPRIL [Concomitant]
     Dates: end: 20080801

REACTIONS (1)
  - FACE OEDEMA [None]
